FAERS Safety Report 24324849 (Version 1)
Quarter: 2024Q3

REPORT INFORMATION
  Report Type: Spontaneous
  Country: AU (occurrence: AU)
  Receive Date: 20240916
  Receipt Date: 20240916
  Transmission Date: 20241016
  Serious: Yes (Other)
  Sender: HILL DERM
  Company Number: AU-Hill Dermaceuticals, Inc.-2161681

PATIENT
  Age: 54 Year
  Sex: Female

DRUGS (2)
  1. TOLAK [Suspect]
     Active Substance: FLUOROURACIL
     Indication: Actinic keratosis
     Dates: start: 20230511, end: 20230601
  2. MORPHINE HYDROCHLORIDE [Suspect]
     Active Substance: MORPHINE HYDROCHLORIDE

REACTIONS (5)
  - Skin fissures [Recovered/Resolved]
  - Off label use [Unknown]
  - Product use issue [Unknown]
  - Application site erythema [Recovered/Resolved]
  - Dry skin [Recovered/Resolved]

NARRATIVE: CASE EVENT DATE: 20230511
